FAERS Safety Report 21337815 (Version 1)
Quarter: 2022Q3

REPORT INFORMATION
  Report Type: Spontaneous
  Country: None (occurrence: US)
  Receive Date: 20220915
  Receipt Date: 20220915
  Transmission Date: 20221027
  Serious: No
  Sender: FDA-Public Use
  Company Number: US-Mikart, LLC-2132885

PATIENT
  Age: 74 Year
  Sex: Female

DRUGS (5)
  1. BUTALBITAL, ACETAMINOPHEN, AND CAFFEINE [Suspect]
     Active Substance: ACETAMINOPHEN\BUTALBITAL\CAFFEINE
     Indication: Migraine
     Route: 048
     Dates: start: 202201
  2. NURTEC ODT [Concomitant]
     Active Substance: RIMEGEPANT SULFATE
     Dates: start: 20220301, end: 20220317
  3. XANAX [Concomitant]
     Active Substance: ALPRAZOLAM
  4. REMERON [Concomitant]
     Active Substance: MIRTAZAPINE
  5. Isometheptene (old Midrin) [Concomitant]

REACTIONS (1)
  - Drug ineffective [Unknown]

NARRATIVE: CASE EVENT DATE: 20220101
